FAERS Safety Report 4556798-5 (Version None)
Quarter: 2005Q1

REPORT INFORMATION
  Report Type: 
  Country: None (occurrence: None)
  Receive Date: 20050103
  Receipt Date: 20041021
  Transmission Date: 20050727
  Serious: Yes (Hospitalization)
  Sender: FDA-Public Use
  Company Number: 2004UW13634

PATIENT
  Age: 47 Year
  Sex: Male

DRUGS (5)
  1. CRESTOR [Suspect]
  2. EFFEXOR [Suspect]
  3. NARCOTIC PAIN MEDICATION [Suspect]
     Indication: NECK PAIN
  4. SEROQUEL [Concomitant]
  5. ZOCOR ^MERCK FROSST^ [Concomitant]

REACTIONS (2)
  - RENAL FAILURE [None]
  - RHABDOMYOLYSIS [None]
